FAERS Safety Report 25940930 (Version 1)
Quarter: 2025Q4

REPORT INFORMATION
  Report Type: Spontaneous
  Country: US (occurrence: None)
  Receive Date: 20251020
  Receipt Date: 20251020
  Transmission Date: 20260118
  Serious: Yes (Other)
  Sender: FDA-CTU
  Company Number: None

PATIENT
  Sex: Male

DRUGS (11)
  1. PAZOPANIB [Suspect]
     Active Substance: PAZOPANIB
     Indication: Soft tissue sarcoma
     Dosage: TAKE 4 TABLETS (800 MG TOTAL) BY MOUTH DAILY. TAKE ON AN EMPTY STOMACH WITH GLASS OF WATER AT LEAST 1 OUR BEFORE OR 2 HOURS AFTER FOOD. DO NOT CRUSH.
     Route: 048
     Dates: start: 20250823
  2. ASPIRIN [Concomitant]
     Active Substance: ASPIRIN
  3. ATORVASTATIN [Concomitant]
     Active Substance: ATORVASTATIN
  4. DOXYCYCLINE HYCLATE [Concomitant]
     Active Substance: DOXYCYCLINE HYCLATE
  5. ELIQUIS [Concomitant]
     Active Substance: APIXABAN
  6. FUROSEMIDE [Concomitant]
     Active Substance: FUROSEMIDE
  7. GABAPENTIN [Concomitant]
     Active Substance: GABAPENTIN
  8. LIDO/PRILOCN CRE [Concomitant]
  9. LOSARTAN POTASSIUM [Concomitant]
     Active Substance: LOSARTAN POTASSIUM
  10. METHOCARBAMOL [Concomitant]
     Active Substance: METHOCARBAMOL
  11. METOPROLOL SUCCINATE [Concomitant]
     Active Substance: METOPROLOL SUCCINATE

REACTIONS (3)
  - Dyspnoea [None]
  - Near death experience [None]
  - Hypersomnia [None]
